FAERS Safety Report 8901558 (Version 1)
Quarter: 2012Q4

REPORT INFORMATION
  Report Type: 
  Country: US (occurrence: US)
  Receive Date: 20121108
  Receipt Date: 20121108
  Transmission Date: 20130627
  Serious: Yes (Other)
  Sender: FDA-Public Use
  Company Number: CHPA2012US016011

PATIENT
  Age: 34 Year
  Sex: Female

DRUGS (2)
  1. EXCEDRIN MIGRAINE [Suspect]
     Dosage: 2 UNK, EVERY MORNING and OCCASIONALLY IN THE AFTERNOON
  2. ALEVE [Suspect]
     Dosage: 4 Unk, EVERY MORNING and OCCASIONALLY IN THE AFTERNOON

REACTIONS (2)
  - Gastritis erosive [Unknown]
  - Overdose [Unknown]
